FAERS Safety Report 16346424 (Version 1)
Quarter: 2019Q2

REPORT INFORMATION
  Report Type: Spontaneous
  Country: US (occurrence: US)
  Receive Date: 20190417
  Receipt Date: 20190417
  Transmission Date: 20190711
  Serious: No
  Sender: FDA-Public Use
  Company Number: None

PATIENT
  Age: 59 Year
  Sex: Female

DRUGS (1)
  1. DALFAMPRIDINE 10MG ER TAB [Suspect]
     Active Substance: DALFAMPRIDINE

REACTIONS (4)
  - Hypoaesthesia [None]
  - Hyperaesthesia [None]
  - Symptom recurrence [None]
  - Therapy cessation [None]

NARRATIVE: CASE EVENT DATE: 20190417
